FAERS Safety Report 25198682 (Version 1)
Quarter: 2025Q2

REPORT INFORMATION
  Report Type: Spontaneous
  Country: US (occurrence: None)
  Receive Date: 20250414
  Receipt Date: 20250414
  Transmission Date: 20250717
  Serious: Yes (Other)
  Sender: FDA-CTU
  Company Number: None

PATIENT
  Age: 63 Year
  Sex: Female

DRUGS (1)
  1. NUCALA [Suspect]
     Active Substance: MEPOLIZUMAB
     Indication: Asthma
     Dosage: FREQUENCY : MONTHLY;?

REACTIONS (4)
  - Vision blurred [None]
  - Visual impairment [None]
  - Eye inflammation [None]
  - Diabetes mellitus [None]
